FAERS Safety Report 25233611 (Version 1)
Quarter: 2025Q2

REPORT INFORMATION
  Report Type: Spontaneous
  Country: US (occurrence: US)
  Receive Date: 20250424
  Receipt Date: 20250424
  Transmission Date: 20250717
  Serious: Yes (Hospitalization, Other)
  Sender: EMCURE PHARMACEUTICALS LTD
  Company Number: US-AVET LIFESCIENCES LTD-2025-AVET-000109

PATIENT
  Age: 30 Year
  Sex: Female

DRUGS (4)
  1. VENLAFAXINE HYDROCHLORIDE [Suspect]
     Active Substance: VENLAFAXINE HYDROCHLORIDE
     Indication: Anxiety
     Route: 065
  2. VENLAFAXINE HYDROCHLORIDE [Suspect]
     Active Substance: VENLAFAXINE HYDROCHLORIDE
     Indication: Depression
  3. PREGABALIN [Suspect]
     Active Substance: PREGABALIN
     Indication: Nerve compression
     Route: 065
  4. FENTANYL [Suspect]
     Active Substance: FENTANYL
     Indication: Nerve compression
     Route: 065

REACTIONS (5)
  - Encephalopathy [Recovering/Resolving]
  - Rhabdomyolysis [Unknown]
  - Acute kidney injury [Unknown]
  - Agitation [Unknown]
  - Liver function test abnormal [Recovering/Resolving]
